FAERS Safety Report 8589927-7 (Version None)
Quarter: 2012Q3

REPORT INFORMATION
  Report Type: 
  Country: None (occurrence: None)
  Receive Date: 20120813
  Receipt Date: 19940502
  Transmission Date: 20120928
  Serious: Yes (Hospitalization)
  Sender: FDA-Public Use
  Company Number: US-ROCHE-1098784

PATIENT
  Age: 50 Year
  Sex: Male

DRUGS (10)
  1. SURFAK (CANADA) [Concomitant]
  2. LOPRESSOR [Concomitant]
     Route: 048
  3. NITROGLYCERIN [Concomitant]
     Route: 041
  4. COMPAZINE [Concomitant]
  5. ASPIRIN [Concomitant]
  6. ACTIVASE [Suspect]
     Indication: ACUTE MYOCARDIAL INFARCTION
  7. ATIVAN [Concomitant]
  8. OXYGEN [Concomitant]
  9. LOPRESSOR [Concomitant]
     Route: 042
  10. MORPHINE [Concomitant]

REACTIONS (5)
  - CHEST DISCOMFORT [None]
  - ELECTROCARDIOGRAM ST SEGMENT ELEVATION [None]
  - CHEST PAIN [None]
  - HYPOKALAEMIA [None]
  - EXTRASYSTOLES [None]
